FAERS Safety Report 4544933-4 (Version None)
Quarter: 2005Q1

REPORT INFORMATION
  Report Type: 
  Country: None (occurrence: None)
  Receive Date: 20050105
  Receipt Date: 20041223
  Transmission Date: 20050727
  Serious: Yes (Other)
  Sender: FDA-Public Use
  Company Number: US-JNJFOC-20041206828

PATIENT
  Sex: Female

DRUGS (3)
  1. MONISTAT [Suspect]
     Route: 067
  2. COUMADIN [Suspect]
  3. Z-PACK [Suspect]
     Indication: DRUG USE FOR UNKNOWN INDICATION

REACTIONS (2)
  - FUNGAL INFECTION [None]
  - INTERNATIONAL NORMALISED RATIO INCREASED [None]
